FAERS Safety Report 16311940 (Version 2)
Quarter: 2019Q2

REPORT INFORMATION
  Report Type: Spontaneous
  Country: US (occurrence: US)
  Receive Date: 20190514
  Receipt Date: 20190516
  Transmission Date: 20190711
  Serious: Yes (Hospitalization, Other)
  Sender: FDA-Public Use
  Company Number: US-UNITED THERAPEUTICS-UNT-2019-008357

PATIENT
  Age: 36 Year
  Sex: Female

DRUGS (4)
  1. REMODULIN [Suspect]
     Active Substance: TREPROSTINIL
     Indication: PORTOPULMONARY HYPERTENSION
     Dosage: 0.038 ?G/KG, CONTINUING
     Route: 058
     Dates: start: 2018
  2. REMODULIN [Suspect]
     Active Substance: TREPROSTINIL
     Dosage: 0.037 ?G/KG, CONTINUING
     Route: 058
  3. MACITENTAN [Suspect]
     Active Substance: MACITENTAN
     Indication: PORTOPULMONARY HYPERTENSION
     Dosage: 10 MG, UNK
     Route: 065
  4. REMODULIN [Suspect]
     Active Substance: TREPROSTINIL
     Dosage: 0.027 ?G/KG, CONTINUING
     Route: 058

REACTIONS (9)
  - Oedema peripheral [Unknown]
  - Cardiac failure high output [Recovering/Resolving]
  - Haemoptysis [Recovered/Resolved]
  - Malnutrition [Unknown]
  - Pulmonary alveolar haemorrhage [Recovered/Resolved]
  - Off label use [Unknown]
  - Oesophageal varices haemorrhage [Recovering/Resolving]
  - Hypoxia [Recovered/Resolved]
  - Platelet dysfunction [Recovering/Resolving]

NARRATIVE: CASE EVENT DATE: 201808
